FAERS Safety Report 4405937-5 (Version None)
Quarter: 2004Q3

REPORT INFORMATION
  Report Type: 
  Country: None (occurrence: None)
  Receive Date: 20040723
  Receipt Date: 20040211
  Transmission Date: 20050211
  Serious: No
  Sender: FDA-Public Use
  Company Number: US-GLAXOSMITHKLINE-A0497809A

PATIENT
  Age: 60 Year
  Sex: Female

DRUGS (10)
  1. AVANDIA [Suspect]
     Dosage: 4MG PER DAY
     Route: 048
  2. GLUCOTROL XL [Concomitant]
  3. GLUCOPHAGE [Concomitant]
  4. COZAAR [Concomitant]
  5. LOZOL [Concomitant]
  6. ALLOPURINOL [Concomitant]
  7. ESTRATEST [Concomitant]
  8. PRAVACHOL [Concomitant]
  9. ZYRTEC [Concomitant]
  10. PREVACID [Concomitant]

REACTIONS (3)
  - HYPERGLYCAEMIA [None]
  - HYPOGLYCAEMIA [None]
  - WEIGHT INCREASED [None]
